FAERS Safety Report 7917893-3 (Version None)
Quarter: 2011Q4

REPORT INFORMATION
  Report Type: 
  Country: None (occurrence: None)
  Receive Date: 20111116
  Receipt Date: 20111109
  Transmission Date: 20120403
  Serious: Yes (Hospitalization, Other)
  Sender: FDA-Public Use
  Company Number: PHEH2011US01030

PATIENT
  Sex: Female

DRUGS (2)
  1. EXJADE [Suspect]
     Dosage: 125 MG, QD
     Route: 048
  2. EXJADE [Suspect]
     Dosage: 125 MG, QD
     Route: 048

REACTIONS (12)
  - MEMORY IMPAIRMENT [None]
  - TREMOR [None]
  - ABDOMINAL DISCOMFORT [None]
  - HALLUCINATION [None]
  - PYREXIA [None]
  - NASOPHARYNGITIS [None]
  - VOMITING [None]
  - BRONCHITIS [None]
  - FALL [None]
  - NAUSEA [None]
  - ASTHENIA [None]
  - FATIGUE [None]
